FAERS Safety Report 4353311-2 (Version None)
Quarter: 2004Q2

REPORT INFORMATION
  Report Type: 
  Country: None (occurrence: None)
  Receive Date: 20040429
  Receipt Date: 20040422
  Transmission Date: 20050107
  Serious: Yes (Life-Threatening, Hospitalization)
  Sender: FDA-Public Use
  Company Number: 206062

PATIENT
  Age: 52 Year
  Sex: Female
  Weight: 53.5 kg

DRUGS (11)
  1. XOLAIR [Suspect]
     Indication: ASTHMA
     Dosage: 150 MG, Q4W
     Dates: start: 20021201
  2. ALBUTEROL (ALBUTEROL SULFATE, ALBUTEROL) [Concomitant]
  3. PREVACID [Concomitant]
  4. FLOVENT [Concomitant]
  5. ESTROGENIC HORM SUBSTANCES TAB [Concomitant]
  6. VICODIN [Concomitant]
  7. LEVAQUIN [Concomitant]
  8. PREDNISONE [Concomitant]
  9. PROZAC [Concomitant]
  10. ZOFRAN [Concomitant]
  11. DIFLUCAN [Concomitant]

REACTIONS (4)
  - ADRENAL SUPPRESSION [None]
  - BRONCHOPULMONARY ASPERGILLOSIS [None]
  - HAEMOPTYSIS [None]
  - LUNG INFILTRATION [None]
